FAERS Safety Report 21198470 (Version 1)
Quarter: 2022Q3

REPORT INFORMATION
  Report Type: Spontaneous
  Country: US (occurrence: US)
  Receive Date: 20220811
  Receipt Date: 20220811
  Transmission Date: 20221027
  Serious: No
  Sender: FDA-Public Use
  Company Number: US-BRISTOL-MYERS SQUIBB COMPANY-2022-086952

PATIENT
  Age: 55 Year
  Sex: Male
  Weight: 54.88 kg

DRUGS (1)
  1. REVLIMID [Suspect]
     Active Substance: LENALIDOMIDE
     Indication: Follicular lymphoma
     Dosage: FREQ: DAILY FOR 21 DAYS AND 7 DAY
     Route: 048
     Dates: start: 20220519, end: 20220808

REACTIONS (1)
  - Muscle spasms [Not Recovered/Not Resolved]
